FAERS Safety Report 18316250 (Version 2)
Quarter: 2025Q3

REPORT INFORMATION
  Report Type: Spontaneous
  Country: US (occurrence: US)
  Receive Date: 20200927
  Receipt Date: 20250926
  Transmission Date: 20251020
  Serious: Yes (Life-Threatening, Hospitalization, Other)
  Sender: TORRENT PHARMA INC.
  Company Number: US-MACLEODS PHARMACEUTICALS US LTD-MAC2019021167

PATIENT
  Age: 59 Year
  Sex: Female

DRUGS (2)
  1. SILDENAFIL [Suspect]
     Active Substance: SILDENAFIL
     Indication: Pulmonary hypertension
     Route: 065
  2. OXYGEN [Concomitant]
     Active Substance: OXYGEN
     Indication: Product used for unknown indication
     Route: 065

REACTIONS (7)
  - Pulmonary hypertension [Recovered/Resolved]
  - Increased ventricular preload [Recovered/Resolved]
  - Cardiac failure acute [Recovered/Resolved]
  - Secretion discharge [Recovered/Resolved]
  - Pulmonary oedema [Recovered/Resolved]
  - Pulseless electrical activity [Recovered/Resolved]
  - Syncope [Recovered/Resolved]
